FAERS Safety Report 20212466 (Version 1)
Quarter: 2021Q4

REPORT INFORMATION
  Report Type: Report from Study
  Country: BR (occurrence: BR)
  Receive Date: 20211221
  Receipt Date: 20211221
  Transmission Date: 20220303
  Serious: Yes (Death, Hospitalization, Other)
  Sender: FDA-Public Use
  Company Number: BR-BoehringerIngelheim-2021-BI-144596

PATIENT
  Age: 68 Year
  Sex: Male

DRUGS (1)
  1. OFEV [Suspect]
     Active Substance: NINTEDANIB
     Indication: Pulmonary fibrosis
     Route: 048
     Dates: start: 20210811, end: 20211024

REACTIONS (10)
  - Acute respiratory failure [Fatal]
  - Sepsis [Fatal]
  - Hypertension [Fatal]
  - Pulmonary embolism [Fatal]
  - Pyrexia [Unknown]
  - Dyspnoea [Unknown]
  - Respiratory arrest [Recovered/Resolved]
  - Respiratory arrest [Recovered/Resolved]
  - Respiratory arrest [Recovered/Resolved]
  - Nosocomial infection [Unknown]

NARRATIVE: CASE EVENT DATE: 20211001
